FAERS Safety Report 26107882 (Version 1)
Quarter: 2025Q4

REPORT INFORMATION
  Report Type: Spontaneous
  Country: US (occurrence: None)
  Receive Date: 20251128
  Receipt Date: 20251128
  Transmission Date: 20260118
  Serious: Yes (Death)
  Sender: FDA-CTU
  Company Number: None

PATIENT
  Age: 37 Year
  Sex: Male

DRUGS (1)
  1. INVEGA TRINZA [Suspect]
     Active Substance: PALIPERIDONE PALMITATE
     Indication: Bipolar disorder
     Dosage: OTHER FREQUENCY : EVERY 3 MONTHS ;?
     Route: 030
     Dates: start: 20221115, end: 20251025

REACTIONS (1)
  - Death [None]

NARRATIVE: CASE EVENT DATE: 20251025
